FAERS Safety Report 8081403-3 (Version None)
Quarter: 2012Q1

REPORT INFORMATION
  Report Type: 
  Country: None (occurrence: None)
  Receive Date: 20120130
  Receipt Date: 20120118
  Transmission Date: 20120608
  Serious: Yes (Death, Hospitalization)
  Sender: FDA-Public Use
  Company Number: IT-PFIZER INC-2011242345

PATIENT
  Age: 67 Year
  Sex: Female
  Weight: 86 kg

DRUGS (4)
  1. IDARUBICIN HCL [Suspect]
     Indication: ACUTE MYELOID LEUKAEMIA
     Dosage: 15 MG, UNK
     Route: 042
     Dates: start: 20070513, end: 20070517
  2. ETOPOSIDE [Suspect]
     Indication: ACUTE MYELOID LEUKAEMIA
     Dosage: 185 MG, UNK
     Route: 042
     Dates: start: 20070513, end: 20070515
  3. CYTARABINE [Suspect]
     Indication: ACUTE MYELOID LEUKAEMIA
     Dosage: 185 MG, UNK
     Route: 042
     Dates: start: 20070513, end: 20070517
  4. GEMTUZUMAB OZOGAMICIN [Suspect]
     Indication: ACUTE MYELOID LEUKAEMIA
     Dosage: 5.5 MG, UNK
     Route: 042
     Dates: start: 20070512, end: 20070512

REACTIONS (1)
  - SYSTEMIC CANDIDA [None]
